FAERS Safety Report 7063488-6 (Version None)
Quarter: 2010Q4

REPORT INFORMATION
  Report Type: 
  Country: None (occurrence: None)
  Receive Date: 20101026
  Receipt Date: 20100413
  Transmission Date: 20110411
  Serious: No
  Sender: FDA-Public Use
  Company Number: US-ABBOTT-10P-163-0639145-00

PATIENT
  Sex: Female
  Weight: 57.658 kg

DRUGS (4)
  1. LUPRON DEPOT [Suspect]
     Indication: ENDOMETRIOSIS
     Dosage: 1-MINIMUM DOSE, ONCE A MONTH
     Dates: start: 20100303
  2. DORYX [Concomitant]
     Indication: ACNE
     Route: 048
  3. NORETHINDRONE [Concomitant]
     Indication: HORMONE REPLACEMENT THERAPY
  4. SPIRONOLACTONE [Concomitant]
     Indication: PRODUCT USED FOR UNKNOWN INDICATION
     Route: 048

REACTIONS (2)
  - MENORRHAGIA [None]
  - POLYMENORRHOEA [None]
